FAERS Safety Report 11831237 (Version 2)
Quarter: 2015Q4

REPORT INFORMATION
  Report Type: Spontaneous
  Country: CN (occurrence: CN)
  Receive Date: 20151214
  Receipt Date: 20151225
  Transmission Date: 20160305
  Serious: Yes (Other)
  Sender: FDA-Public Use
  Company Number: CN-ROCHE-1676701

PATIENT
  Age: 64 Year
  Sex: Female

DRUGS (1)
  1. ACTILYSE [Suspect]
     Active Substance: ALTEPLASE
     Indication: THROMBOLYSIS
     Dosage: 10 MG, 1 MG/MIN.
     Route: 013

REACTIONS (1)
  - Injection site extravasation [Unknown]
